FAERS Safety Report 11543109 (Version 1)
Quarter: 2015Q3

REPORT INFORMATION
  Report Type: Spontaneous
  Country: US (occurrence: US)
  Receive Date: 20150903
  Receipt Date: 20150903
  Transmission Date: 20151125
  Serious: No
  Sender: FDA-Public Use
  Company Number: US-ELI_LILLY_AND_COMPANY-US201106001689

PATIENT
  Sex: Male

DRUGS (2)
  1. LANTUS [Concomitant]
     Active Substance: INSULIN GLARGINE
     Dosage: UNK, EACH MORNING
  2. HUMALOG [Suspect]
     Active Substance: INSULIN LISPRO
     Indication: TYPE 1 DIABETES MELLITUS
     Dosage: 8 U, TID

REACTIONS (10)
  - Dysgeusia [Unknown]
  - Blood glucose increased [Unknown]
  - Tremor [Unknown]
  - Crohn^s disease [Not Recovered/Not Resolved]
  - Stomatitis [Unknown]
  - Hypersensitivity [Unknown]
  - Oral pain [Unknown]
  - Blood glucose decreased [Unknown]
  - Dizziness [Unknown]
  - Anger [Unknown]
